FAERS Safety Report 17939454 (Version 1)
Quarter: 2020Q2

REPORT INFORMATION
  Report Type: Spontaneous
  Country: FR (occurrence: FR)
  Receive Date: 20200624
  Receipt Date: 20200624
  Transmission Date: 20200714
  Serious: Yes (Hospitalization)
  Sender: FDA-Public Use
  Company Number: FR-JNJFOC-20200624073

PATIENT
  Age: 42 Year
  Sex: Female

DRUGS (2)
  1. EFFENTORA [Suspect]
     Active Substance: FENTANYL CITRATE
     Indication: ANALGESIC INTERVENTION SUPPORTIVE THERAPY
     Route: 048
  2. DUROGESIC [Suspect]
     Active Substance: FENTANYL
     Indication: ANALGESIC INTERVENTION SUPPORTIVE THERAPY
     Route: 003

REACTIONS (2)
  - Hyperaesthesia [Recovering/Resolving]
  - Dependence [Not Recovered/Not Resolved]

NARRATIVE: CASE EVENT DATE: 2015
